FAERS Safety Report 14539844 (Version 2)
Quarter: 2018Q1

REPORT INFORMATION
  Report Type: Report from Study
  Country: CA (occurrence: CA)
  Receive Date: 20180216
  Receipt Date: 20180301
  Transmission Date: 20180509
  Serious: Yes (Death)
  Sender: FDA-Public Use
  Company Number: CA-HLSUS-2018-CA-000229

PATIENT
  Age: 65 Year
  Sex: Male
  Weight: 160 kg

DRUGS (1)
  1. CLOZARIL [Suspect]
     Active Substance: CLOZAPINE
     Indication: SCHIZOPHRENIA
     Dosage: 100 MG IN THE MORNING AND 200 MG AT BEDTIME
     Route: 048
     Dates: start: 19970226, end: 20180127

REACTIONS (1)
  - Lung neoplasm malignant [Fatal]

NARRATIVE: CASE EVENT DATE: 201710
